FAERS Safety Report 25955004 (Version 1)
Quarter: 2025Q4

REPORT INFORMATION
  Report Type: Spontaneous
  Country: US (occurrence: US)
  Receive Date: 20251024
  Receipt Date: 20251024
  Transmission Date: 20260118
  Serious: Yes (Other)
  Sender: ANI
  Company Number: US-ANIPHARMA-030961

PATIENT
  Sex: Male

DRUGS (1)
  1. HYOSCYAMINE SULFATE [Suspect]
     Active Substance: HYOSCYAMINE SULFATE
     Indication: Product used for unknown indication
     Dosage: STRENGTH: 0.125 MG
     Route: 048

REACTIONS (2)
  - Foreign body in throat [Unknown]
  - Dysphagia [Unknown]
